FAERS Safety Report 15495634 (Version 2)
Quarter: 2018Q4

REPORT INFORMATION
  Report Type: Spontaneous
  Country: US (occurrence: US)
  Receive Date: 20181014
  Receipt Date: 20181016
  Transmission Date: 20190205
  Serious: No
  Sender: FDA-Public Use
  Company Number: US-BAXTER-2018BAX025267

PATIENT

DRUGS (1)
  1. BUPIVACAINE HYDROCHLORIDE IN 8.25% DEXTROSE INJECTION USP [Suspect]
     Active Substance: BUPIVACAINE HYDROCHLORIDE
     Indication: SPINAL ANAESTHESIA
     Dosage: BUPIVACAINE HCL IN 8.25% DEXTROSE INJECTION, USP 7.5 MG/ML SINGLE DOSE AMPULE (10 X 2 ML)
     Route: 008

REACTIONS (1)
  - Drug effect decreased [Unknown]
